FAERS Safety Report 9657023 (Version 1)
Quarter: 2013Q4

REPORT INFORMATION
  Report Type: Spontaneous
  Country: IN (occurrence: None)
  Receive Date: 20131028
  Receipt Date: 20131028
  Transmission Date: 20140711
  Serious: Yes (Hospitalization)
  Sender: FDA-Public Use
  Company Number: FK201304737

PATIENT
  Age: 65 Year
  Sex: Male

DRUGS (3)
  1. FLUOROURACIL (MANUFACTURER UNKNOWN) (FLUOROURACIL) (FLUOROURACIL) [Suspect]
     Indication: OESOPHAGEAL ADENOCARCINOMA
     Route: 042
  2. CISPLATIN (CISPLATIN) [Concomitant]
  3. FOLINIC ACID (FOLINIC ACID) [Concomitant]

REACTIONS (3)
  - Arteriospasm coronary [None]
  - Bundle branch block left [None]
  - Electrocardiogram ST segment elevation [None]
